FAERS Safety Report 9753122 (Version 2)
Quarter: 2015Q3

REPORT INFORMATION
  Report Type: Spontaneous
  Country: US (occurrence: US)
  Receive Date: 20131213
  Receipt Date: 20150805
  Transmission Date: 20151125
  Serious: No
  Sender: FDA-Public Use
  Company Number: US-GILEAD-2010-0026339

PATIENT
  Age: 51 Year
  Sex: Male

DRUGS (13)
  1. REVATIO [Concomitant]
     Active Substance: SILDENAFIL CITRATE
  2. MAG OXIDE [Concomitant]
     Active Substance: MAGNESIUM OXIDE
  3. FLOVENT AER [Concomitant]
  4. VITAMIN D-1000 [Concomitant]
  5. SYNTHROID [Concomitant]
     Active Substance: LEVOTHYROXINE SODIUM
  6. FOLIC ACID. [Concomitant]
     Active Substance: FOLIC ACID
  7. COUMADIN [Concomitant]
     Active Substance: WARFARIN SODIUM
  8. MULTI TAB FOR HIM [Concomitant]
     Route: 055
  9. MULTI TAB FOR HIM [Concomitant]
     Route: 048
  10. DIOVAN [Concomitant]
     Active Substance: VALSARTAN
  11. LETAIRIS [Suspect]
     Active Substance: AMBRISENTAN
     Indication: PULMONARY ARTERIAL HYPERTENSION
     Route: 048
     Dates: start: 20091112
  12. LOPRESSOR [Concomitant]
     Active Substance: METOPROLOL TARTRATE
  13. BUMEX [Concomitant]
     Active Substance: BUMETANIDE

REACTIONS (5)
  - Epistaxis [Unknown]
  - Headache [Unknown]
  - Nasal congestion [Unknown]
  - Rash [Unknown]
  - Fatigue [Unknown]

NARRATIVE: CASE EVENT DATE: 20091206
